FAERS Safety Report 20016570 (Version 1)
Quarter: 2021Q4

REPORT INFORMATION
  Report Type: Spontaneous
  Country: US (occurrence: None)
  Receive Date: 20211104
  Receipt Date: 20211104
  Transmission Date: 20220303
  Serious: Yes (Death)
  Sender: FDA-Public Use
  Company Number: None

PATIENT
  Age: 43 Year
  Sex: Male
  Weight: 132 kg

DRUGS (1)
  1. BARICITINIB [Suspect]
     Active Substance: BARICITINIB
     Indication: COVID-19 pneumonia
     Dosage: FREQUENCY : DAILY;?
     Route: 048
     Dates: start: 20210908, end: 20210918

REACTIONS (18)
  - Hypoxia [None]
  - Pseudomonal bacteraemia [None]
  - Klebsiella test positive [None]
  - Staphylococcal infection [None]
  - Stenotrophomonas test positive [None]
  - Pneumothorax [None]
  - Pulmonary fibrosis [None]
  - Renal failure [None]
  - Renal tubular necrosis [None]
  - Haemodialysis [None]
  - Adrenal insufficiency [None]
  - Sepsis [None]
  - Cardiogenic shock [None]
  - Right ventricular failure [None]
  - Lung disorder [None]
  - Multiple organ dysfunction syndrome [None]
  - Pulseless electrical activity [None]
  - Death [None]

NARRATIVE: CASE EVENT DATE: 20211029
